FAERS Safety Report 6439238-0 (Version None)
Quarter: 2009Q4

REPORT INFORMATION
  Report Type: 
  Country: None (occurrence: None)
  Receive Date: 20091111
  Receipt Date: 20091111
  Transmission Date: 20100525
  Serious: Yes (Life-Threatening, Hospitalization)
  Sender: FDA-Public Use
  Company Number: None

PATIENT
  Age: 60 Year
  Sex: Female
  Weight: 61 kg

DRUGS (1)
  1. CEFTRIAXONE [Suspect]
     Dosage: 1 GRAM ONCE IM
     Route: 030
     Dates: start: 20090820, end: 20090820

REACTIONS (3)
  - CHEST PAIN [None]
  - RESPIRATORY FAILURE [None]
  - TACHYCARDIA [None]
